FAERS Safety Report 4667100-2 (Version None)
Quarter: 2005Q2

REPORT INFORMATION
  Report Type: 
  Country: None (occurrence: None)
  Receive Date: 20050520
  Receipt Date: 20050120
  Transmission Date: 20051028
  Serious: Yes (Other)
  Sender: FDA-Public Use
  Company Number: PHBS2005CH01206

PATIENT
  Age: 70 Year
  Sex: Female

DRUGS (1)
  1. ZOMETA [Suspect]
     Indication: BREAST CANCER METASTATIC
     Dosage: 4 MG EVERY 3 - 4 WEEKS
     Route: 042
     Dates: start: 20040101

REACTIONS (2)
  - JAW DISORDER [None]
  - OSTEONECROSIS [None]
